FAERS Safety Report 13557195 (Version 1)
Quarter: 2017Q2

REPORT INFORMATION
  Report Type: Spontaneous
  Country: FR (occurrence: FR)
  Receive Date: 20170517
  Receipt Date: 20170517
  Transmission Date: 20170830
  Serious: Yes (Other)
  Sender: FDA-Public Use
  Company Number: FR-MERCK KGAA-2020902

PATIENT
  Age: 85 Year
  Sex: Female

DRUGS (11)
  1. NOVOTHYROX [Suspect]
     Active Substance: LEVOTHYROXINE SODIUM
     Indication: PRODUCT USED FOR UNKNOWN INDICATION
     Route: 048
     Dates: start: 20170415, end: 20170417
  2. ALPRAZOLAM MYLAN [Suspect]
     Active Substance: ALPRAZOLAM
     Route: 048
     Dates: start: 20170414, end: 20170417
  3. ZOPICLONE ARROW [Suspect]
     Active Substance: ZOPICLONE
     Route: 048
     Dates: start: 20170414, end: 20170417
  4. VALACYCLOVIR [Concomitant]
     Active Substance: VALACYCLOVIR HYDROCHLORIDE
     Route: 048
     Dates: start: 20170415, end: 20170418
  5. PRAVASTATINA ARROW [Suspect]
     Active Substance: PRAVASTATIN SODIUM
     Route: 048
     Dates: start: 20170415, end: 20170417
  6. PREVISCAN [Suspect]
     Active Substance: FLUINDIONE
     Route: 048
     Dates: start: 20170414, end: 20170417
  7. PANTOPRAZOLE EG [Suspect]
     Active Substance: PANTOPRAZOLE SODIUM
     Route: 048
     Dates: start: 20170415, end: 20170417
  8. AMLODIPINE [Concomitant]
     Active Substance: AMLODIPINE BESYLATE
     Route: 048
  9. OXCARBAZEPINE MYLAN 300 MG, COMPRIM? PELLICUL? [Suspect]
     Active Substance: OXCARBAZEPINE
     Dates: start: 20170415, end: 20170417
  10. LAMOTRIGINE ARROW [Suspect]
     Active Substance: LAMOTRIGINE
     Dates: start: 20170415, end: 20170417
  11. FLUVASTATIN [Concomitant]
     Active Substance: FLUVASTATIN SODIUM

REACTIONS (4)
  - Disturbance in attention [Recovered/Resolved]
  - Drug prescribing error [Unknown]
  - Somnolence [Recovered/Resolved]
  - Wrong patient received medication [None]

NARRATIVE: CASE EVENT DATE: 20170415
